FAERS Safety Report 7406575-2 (Version None)
Quarter: 2011Q2

REPORT INFORMATION
  Report Type: 
  Country: None (occurrence: None)
  Receive Date: 20110411
  Receipt Date: 20110328
  Transmission Date: 20111010
  Serious: Yes (Other)
  Sender: FDA-Public Use
  Company Number: US-CELGENEUS-163-21880-11033239

PATIENT
  Sex: Female
  Weight: 70.37 kg

DRUGS (8)
  1. DEXAMETHASONE [Concomitant]
     Route: 065
  2. MAGNESIUM OXIDE [Concomitant]
     Route: 065
  3. RIBAVIRIN [Concomitant]
     Indication: RESPIRATORY SYNCYTIAL VIRUS INFECTION
     Route: 065
     Dates: start: 20110101
  4. FLUCONAZOLE [Concomitant]
     Route: 065
  5. REVLIMID [Suspect]
     Indication: MULTIPLE MYELOMA
     Dosage: ONE 10MG + ONE 5MG
     Route: 048
     Dates: start: 20110225, end: 20110307
  6. OMEPRAZOLE [Concomitant]
     Route: 065
  7. SANCICLOVIR [Concomitant]
     Route: 065
  8. ASPIRIN [Concomitant]
     Route: 065

REACTIONS (1)
  - KIDNEY TRANSPLANT REJECTION [None]
